FAERS Safety Report 10734229 (Version 4)
Quarter: 2018Q3

REPORT INFORMATION
  Report Type: Report from Study
  Country: None (occurrence: AU)
  Receive Date: 20150123
  Receipt Date: 20180730
  Transmission Date: 20181010
  Serious: Yes (Hospitalization, Other)
  Sender: FDA-Public Use
  Company Number: AU-ABBVIE-15P-008-1332500-00

PATIENT
  Age: 62 Year
  Sex: Male
  Weight: 63 kg

DRUGS (14)
  1. RIBAVIRIN. [Suspect]
     Active Substance: RIBAVIRIN
     Indication: HEPATITIS C
     Dosage: 400MG IN THE MORNING; 600 MG AT NIGHT
     Route: 048
     Dates: start: 20141025, end: 20141207
  2. AMLODIPINE [Concomitant]
     Active Substance: AMLODIPINE BESYLATE
     Indication: PROPHYLAXIS
     Route: 048
  3. PANTOPRAZOLE [Concomitant]
     Active Substance: PANTOPRAZOLE
     Indication: GASTROOESOPHAGEAL REFLUX PROPHYLAXIS
     Route: 048
  4. MAGNESIUM [Concomitant]
     Active Substance: MAGNESIUM
     Indication: BLOOD MAGNESIUM ABNORMAL
     Route: 048
  5. CALCIUM/CHOLECALCIFEROL [Concomitant]
     Indication: OSTEOPOROSIS PROPHYLAXIS
     Route: 048
  6. AMLODIPINE [Concomitant]
     Active Substance: AMLODIPINE BESYLATE
     Indication: ASCITES
  7. RITONAVIR. [Concomitant]
     Active Substance: RITONAVIR
     Indication: PRODUCT USED FOR UNKNOWN INDICATION
     Dates: start: 2012
  8. ABT?333 [Suspect]
     Active Substance: DASABUVIR
     Route: 048
     Dates: start: 20141210, end: 20150426
  9. TACROLIMUS. [Concomitant]
     Active Substance: TACROLIMUS
     Indication: LIVER TRANSPLANT
     Route: 048
     Dates: start: 20110626
  10. ABT?450/RITONAVIR/ABT?267 [Suspect]
     Active Substance: OMBITASVIR\PARITAPREVIR\RITONAVIR
     Dosage: 150/100/25 MG
     Route: 048
     Dates: start: 20141210, end: 20150426
  11. ABT?333 [Suspect]
     Active Substance: DASABUVIR
     Indication: HEPATITIS C
     Route: 048
     Dates: start: 20141025, end: 20141207
  12. METOPROLOL. [Concomitant]
     Active Substance: METOPROLOL
     Indication: HYPERTENSION
     Route: 048
  13. ABT?450/RITONAVIR/ABT?267 [Suspect]
     Active Substance: OMBITASVIR\PARITAPREVIR\RITONAVIR
     Indication: HEPATITIS C
     Dosage: 150/100/25 MG
     Route: 048
     Dates: start: 20141025, end: 20141207
  14. RIBAVIRIN. [Suspect]
     Active Substance: RIBAVIRIN
     Dosage: 400MG IN THE MORNING; 600 MG AT NIGHT
     Route: 048
     Dates: start: 20141210, end: 20150426

REACTIONS (14)
  - Haemorrhoids [Unknown]
  - Asthenia [Recovered/Resolved]
  - Anaemia [Recovered/Resolved]
  - Bowel preparation [Unknown]
  - Hepatic failure [Recovered/Resolved]
  - Bedridden [Recovered/Resolved]
  - Dehydration [Recovered/Resolved]
  - Large intestine polyp [Unknown]
  - Hepatic encephalopathy [Recovered/Resolved]
  - Rectal haemorrhage [Unknown]
  - Diarrhoea [Recovered/Resolved]
  - Confusional state [Recovered/Resolved]
  - Pruritus [Unknown]
  - Malaise [Recovered/Resolved]

NARRATIVE: CASE EVENT DATE: 20141129
